FAERS Safety Report 8035666-0 (Version None)
Quarter: 2012Q1

REPORT INFORMATION
  Report Type: 
  Country: None (occurrence: None)
  Receive Date: 20120111
  Receipt Date: 20120107
  Transmission Date: 20120608
  Serious: No
  Sender: FDA-Public Use
  Company Number: US-B.I. PHARMACEUTICALS,INC./RIDGEFIELD-2012-BP-00388BP

PATIENT
  Sex: Female

DRUGS (1)
  1. PRADAXA [Suspect]
     Indication: ATRIAL FIBRILLATION
     Dosage: 300 MG
     Route: 048
     Dates: start: 20120106

REACTIONS (12)
  - LACERATION [None]
  - MUSCULOSKELETAL DISCOMFORT [None]
  - DYSPNOEA [None]
  - DIARRHOEA [None]
  - BALANCE DISORDER [None]
  - ABDOMINAL DISCOMFORT [None]
  - HAEMORRHAGE [None]
  - WOUND HAEMORRHAGE [None]
  - VEIN PAIN [None]
  - FEELING HOT [None]
  - ASTHENIA [None]
  - SYNCOPE [None]
